FAERS Safety Report 9885200 (Version 1)
Quarter: 2014Q1

REPORT INFORMATION
  Report Type: Spontaneous
  Country: US (occurrence: US)
  Receive Date: 20140210
  Receipt Date: 20140210
  Transmission Date: 20141002
  Serious: No
  Sender: FDA-Public Use
  Company Number: US-PFIZER INC-2014033535

PATIENT
  Age: 58 Year
  Sex: Female

DRUGS (1)
  1. RAPAMUNE [Suspect]
     Indication: LIVER TRANSPLANT
     Dosage: 1 MG, DAILY
     Dates: start: 20110301

REACTIONS (2)
  - Malaise [Unknown]
  - Off label use [Unknown]
